FAERS Safety Report 10013322 (Version 2)
Quarter: 2014Q1

REPORT INFORMATION
  Report Type: Spontaneous
  Country: US (occurrence: US)
  Receive Date: 20140314
  Receipt Date: 20140314
  Transmission Date: 20141002
  Serious: No
  Sender: FDA-Public Use
  Company Number: US-PFIZER INC-2014074633

PATIENT
  Age: 71 Year
  Sex: Female
  Weight: 79.37 kg

DRUGS (5)
  1. XELJANZ [Suspect]
     Indication: RHEUMATOID ARTHRITIS
     Dosage: 5 MG, 2X/DAY
     Route: 048
     Dates: start: 201306
  2. PREMARIN [Concomitant]
     Dosage: UNK
     Route: 048
  3. NEXIUM [Concomitant]
     Dosage: UNK
     Route: 048
  4. METHOTREXATE [Concomitant]
     Indication: RHEUMATOID ARTHRITIS
     Dosage: 20 MG, WEEKLY (2.5 MG X 8)
     Route: 048
  5. METHOTREXATE [Concomitant]
     Dosage: 20 MG (2.5MG X 8), WEEKLY

REACTIONS (2)
  - Myalgia [Not Recovered/Not Resolved]
  - Muscular weakness [Not Recovered/Not Resolved]
